FAERS Safety Report 23249536 (Version 1)
Quarter: 2023Q4

REPORT INFORMATION
  Report Type: Spontaneous
  Country: US (occurrence: US)
  Receive Date: 20231201
  Receipt Date: 20231201
  Transmission Date: 20240110
  Serious: No
  Sender: FDA-Public Use
  Company Number: US-Ipsen Biopharmaceuticals, Inc.-2023-26717

PATIENT
  Age: 55 Year
  Sex: Female

DRUGS (5)
  1. DYSPORT [Suspect]
     Active Substance: ABOBOTULINUMTOXINA
     Indication: Skin wrinkling
     Dosage: 9 U FOREHEAD, 16 U GLABELLA, 17 U RIGHT SIDE OF EYE, 15 U LEFT SIDE OF EYE
     Route: 030
     Dates: start: 20231019, end: 20231019
  2. DYSPORT [Suspect]
     Active Substance: ABOBOTULINUMTOXINA
     Indication: Skin wrinkling
     Dosage: 5 U FOREHEAD, 15 U GLABELLA, 12 U EACH SIDE OF EYES (CROW^S FEET), 1.5 U UNDER EACH EYES (CROW^S FEE
     Route: 030
     Dates: start: 20231110, end: 20231110
  3. DYSPORT [Suspect]
     Active Substance: ABOBOTULINUMTOXINA
     Indication: Skin wrinkling
  4. DYSPORT [Suspect]
     Active Substance: ABOBOTULINUMTOXINA
     Indication: Off label use
  5. SYNTHROID [Concomitant]
     Active Substance: LEVOTHYROXINE SODIUM
     Indication: Hypothyroidism

REACTIONS (4)
  - Drug ineffective [Unknown]
  - Off label use [Unknown]
  - Product preparation issue [Unknown]
  - Off label use [Unknown]

NARRATIVE: CASE EVENT DATE: 20231019
